FAERS Safety Report 8106432-2 (Version None)
Quarter: 2012Q1

REPORT INFORMATION
  Report Type: 
  Country: None (occurrence: None)
  Receive Date: 20120130
  Receipt Date: 20120117
  Transmission Date: 20120608
  Serious: Yes (Hospitalization)
  Sender: FDA-Public Use
  Company Number: DSJ-2012-00967

PATIENT
  Age: 5 Decade

DRUGS (2)
  1. ANTIHYPERTENSIVE MEDICINES (ANTIHYPERTENSIVES) [Concomitant]
  2. AMLODIPINE BESYLATE AND OLMESARTAN MEDOXOMIL [Suspect]
     Indication: HYPERTENSION
     Dosage: 40/10 MG (1 IN 1 D), PER ORAL
     Route: 048
     Dates: start: 20090101, end: 20120115

REACTIONS (2)
  - INFARCTION [None]
  - DRUG INEFFECTIVE [None]
